FAERS Safety Report 24261438 (Version 1)
Quarter: 2024Q3

REPORT INFORMATION
  Report Type: Spontaneous
  Country: FR (occurrence: FR)
  Receive Date: 20240829
  Receipt Date: 20240829
  Transmission Date: 20241016
  Serious: Yes (Hospitalization, Other)
  Sender: AUROBINDO
  Company Number: FR-AFSSAPS-TS2024000856

PATIENT
  Age: 64 Year
  Sex: Male
  Weight: 82 kg

DRUGS (20)
  1. BENDAMUSTINE [Suspect]
     Active Substance: BENDAMUSTINE
     Indication: Follicular lymphoma
     Dosage: 2160 MILLIGRAM
     Route: 065
  2. BENDAMUSTINE [Suspect]
     Active Substance: BENDAMUSTINE
     Dosage: UNK
     Route: 065
     Dates: start: 201804
  3. DOXORUBICIN [Suspect]
     Active Substance: DOXORUBICIN
     Indication: Follicular lymphoma
     Dosage: 500 MILLIGRAM
     Route: 042
  4. DOXORUBICIN [Suspect]
     Active Substance: DOXORUBICIN
     Dosage: 500 MILLIGRAM,1 TOTAL
     Route: 042
     Dates: start: 2022, end: 202210
  5. PREDNISONE [Suspect]
     Active Substance: PREDNISONE
     Indication: Follicular lymphoma
     Dosage: UNK (4TH LINE OF TREATMENT WITH R-CHOP, 6TH CYCLE OCTOBER 2022)
     Route: 065
     Dates: start: 2022, end: 202210
  6. CYCLOPHOSPHAMIDE [Suspect]
     Active Substance: CYCLOPHOSPHAMIDE
     Indication: Follicular lymphoma
     Dosage: 12600 MILLIGRAM, TOTAL
     Route: 042
     Dates: start: 2018, end: 202210
  7. CYCLOPHOSPHAMIDE [Suspect]
     Active Substance: CYCLOPHOSPHAMIDE
     Dosage: 1000 MILLIGRAM, ONCE A DAY
     Route: 065
     Dates: start: 20230614
  8. CYCLOPHOSPHAMIDE [Suspect]
     Active Substance: CYCLOPHOSPHAMIDE
     Dosage: UNK (4TH LINE OF TREATMENT WITH R-CHOP, 6TH CYCLE OCTOBER 2022)
     Route: 042
     Dates: start: 2018, end: 202210
  9. FLUDARABINE [Suspect]
     Active Substance: FLUDARABINE PHOSPHATE
     Indication: Follicular lymphoma
     Dosage: 180 MILLIGRAM
     Route: 065
  10. FLUDARABINE [Suspect]
     Active Substance: FLUDARABINE PHOSPHATE
     Dosage: 60 MILLIGRAM, ONCE A DAY
     Route: 065
  11. RITUXIMAB [Suspect]
     Active Substance: RITUXIMAB
     Indication: Schwannoma
     Dosage: UNK (4TH LINE OF TREATMENT WITH R-CHOP, 6TH CYCLE OCTOBER 2022)
     Route: 065
     Dates: start: 2022, end: 202210
  12. RITUXIMAB [Suspect]
     Active Substance: RITUXIMAB
     Dosage: 12200 MILLIGRAM
     Route: 065
  13. RITUXIMAB [Suspect]
     Active Substance: RITUXIMAB
     Dosage: UNK (R-BENDA)
     Route: 065
     Dates: start: 201804
  14. RITUXIMAB [Suspect]
     Active Substance: RITUXIMAB
     Dosage: UNK, 4 WEEK
     Route: 065
  15. VINCRISTINE [Suspect]
     Active Substance: VINCRISTINE
     Indication: Follicular lymphoma
     Dosage: 14 MILLIGRAM
     Route: 042
  16. VINCRISTINE [Suspect]
     Active Substance: VINCRISTINE
     Dosage: 14 MILLIGRAM
     Route: 042
     Dates: start: 2022, end: 202210
  17. YESCARTA [Suspect]
     Active Substance: AXICABTAGENE CILOLEUCEL
     Indication: Follicular lymphoma
     Dosage: 1 DOSAGE FORM, 1 TOTAL
     Route: 042
     Dates: start: 20230614, end: 20230614
  18. MESNA [Concomitant]
     Active Substance: MESNA
     Indication: Follicular lymphoma
     Dosage: 1300 MILLIGRAM, ONCE A DAY
     Route: 065
  19. DEXAMETHASONE [Concomitant]
     Active Substance: DEXAMETHASONE
     Indication: Follicular lymphoma
     Dosage: UNK
     Route: 065
  20. TOCILIZUMAB [Concomitant]
     Active Substance: TOCILIZUMAB
     Indication: Follicular lymphoma
     Dosage: UNK
     Route: 065

REACTIONS (7)
  - Myelodysplastic syndrome [Not Recovered/Not Resolved]
  - Cytokine release syndrome [Unknown]
  - Thrombocytopenia [Unknown]
  - Immune effector cell-associated neurotoxicity syndrome [Unknown]
  - Anaemia [Unknown]
  - Dysplasia [Unknown]
  - Off label use [Unknown]

NARRATIVE: CASE EVENT DATE: 20240515
